FAERS Safety Report 17836101 (Version 1)
Quarter: 2020Q2

REPORT INFORMATION
  Report Type: Spontaneous
  Country: US (occurrence: US)
  Receive Date: 20200528
  Receipt Date: 20200528
  Transmission Date: 20200714
  Serious: No
  Sender: FDA-Public Use
  Company Number: US-PFIZER INC-2020198314

PATIENT
  Age: 52 Year
  Sex: Female

DRUGS (7)
  1. ELIQUIS [Suspect]
     Active Substance: APIXABAN
     Dosage: 5 MILLIGRAM, BID
     Route: 048
  2. ELIQUIS [Suspect]
     Active Substance: APIXABAN
     Dosage: 2.5 MILLIGRAM, BID
     Route: 048
     Dates: start: 202001
  3. TIKOSYN [Concomitant]
     Active Substance: DOFETILIDE
     Indication: ATRIAL FLUTTER
     Dosage: UNK
     Route: 048
  4. DOFETILIDE. [Suspect]
     Active Substance: DOFETILIDE
     Indication: ATRIAL FLUTTER
     Dosage: 250 MICROGRAM, BID
     Route: 048
     Dates: start: 202002, end: 202003
  5. TIKOSYN [Concomitant]
     Active Substance: DOFETILIDE
     Dosage: 500 MICROGRAM, BID
     Route: 048
     Dates: start: 2019
  6. TIKOSYN [Concomitant]
     Active Substance: DOFETILIDE
     Dosage: 250 MICROGRAM, BID
     Route: 048
     Dates: start: 2019
  7. TIKOSYN [Concomitant]
     Active Substance: DOFETILIDE
     Dosage: 250 MICROGRAM, BID
     Route: 048
     Dates: start: 202003

REACTIONS (2)
  - Extrasystoles [Unknown]
  - Epistaxis [Unknown]

NARRATIVE: CASE EVENT DATE: 201912
